FAERS Safety Report 5059047-7 (Version None)
Quarter: 2006Q3

REPORT INFORMATION
  Report Type: 
  Country: None (occurrence: None)
  Receive Date: 20060719
  Receipt Date: 20060706
  Transmission Date: 20061208
  Serious: Yes (Hospitalization)
  Sender: FDA-Public Use
  Company Number: 227052

PATIENT
  Age: 75 Year
  Sex: 0
  Weight: 73 kg

DRUGS (2)
  1. AVASTIN [Suspect]
     Indication: LYMPHOMA
     Dosage: 737 MG INTRAVENOUS
     Route: 042
     Dates: start: 20060427
  2. RITUXAN [Suspect]
     Indication: LYMPHOMA
     Dosage: 697 MG, 1/WEEK, INTRAVENOUS
     Route: 042

REACTIONS (3)
  - HAEMOGLOBIN DECREASED [None]
  - HEART RATE INCREASED [None]
  - HYPOTENSION [None]
